FAERS Safety Report 4286443-8 (Version None)
Quarter: 2004Q1

REPORT INFORMATION
  Report Type: 
  Country: None (occurrence: None)
  Receive Date: 20040204
  Receipt Date: 20040127
  Transmission Date: 20041129
  Serious: Yes (Death, Life-Threatening, Hospitalization)
  Sender: FDA-Public Use
  Company Number: 2003UW10785

PATIENT
  Age: 75 Year
  Sex: Female
  Weight: 57.1532 kg

DRUGS (11)
  1. IRESSA [Suspect]
     Indication: BREAST CANCER
     Dosage: 250 MG DAILY PO
     Route: 048
     Dates: start: 20030722, end: 20030814
  2. IRESSA [Suspect]
     Indication: METASTASES TO SKIN
     Dosage: 250 MG DAILY PO
     Route: 048
     Dates: start: 20030722, end: 20030814
  3. TAMOXIFEN [Suspect]
     Indication: BREAST CANCER
     Dosage: 20 MG DAILY PO
     Route: 048
     Dates: start: 19980501, end: 19990901
  4. DECADRON [Concomitant]
  5. ZOLOFT [Concomitant]
  6. XANAX [Concomitant]
  7. CARDIZEM [Concomitant]
  8. RESTORIL [Concomitant]
  9. SYNTHROID [Concomitant]
  10. PREVACID [Concomitant]
  11. PROCRIT [Concomitant]

REACTIONS (15)
  - DEHYDRATION [None]
  - ESCHERICHIA INFECTION [None]
  - HAEMATOCRIT DECREASED [None]
  - HAEMOGLOBIN DECREASED [None]
  - HYPOTENSION [None]
  - INTERNATIONAL NORMALISED RATIO INCREASED [None]
  - LUNG INFILTRATION [None]
  - MUCOSAL INFLAMMATION [None]
  - OEDEMA [None]
  - PATHOGEN RESISTANCE [None]
  - RESPIRATORY DISTRESS [None]
  - RESPIRATORY FAILURE [None]
  - SEPSIS [None]
  - URINARY TRACT INFECTION [None]
  - WHITE BLOOD CELL COUNT INCREASED [None]
